FAERS Safety Report 11982981 (Version 4)
Quarter: 2017Q3

REPORT INFORMATION
  Report Type: Spontaneous
  Country: US (occurrence: US)
  Receive Date: 20160201
  Receipt Date: 20170823
  Transmission Date: 20171127
  Serious: No
  Sender: FDA-Public Use
  Company Number: US-PFIZER INC-2016029689

PATIENT
  Age: 61 Year
  Sex: Female
  Weight: 54 kg

DRUGS (2)
  1. SUTENT [Suspect]
     Active Substance: SUNITINIB MALATE
     Dosage: 37.5 MG, CYCLIC, (DAYS 1-14 Q21 DAYS)
     Route: 048
     Dates: start: 20140922, end: 201707
  2. SUTENT [Suspect]
     Active Substance: SUNITINIB MALATE
     Indication: RENAL CELL CARCINOMA
     Dosage: 37.5 MG, CYCLIC (1D-14D Q 21D)
     Route: 048
     Dates: start: 20140820

REACTIONS (7)
  - Sneezing [Unknown]
  - Gastroenteritis viral [Unknown]
  - Nasal congestion [Unknown]
  - Lacrimation increased [Unknown]
  - Blood pressure increased [Unknown]
  - Epistaxis [Unknown]
  - Neoplasm progression [Unknown]

NARRATIVE: CASE EVENT DATE: 20160118
